FAERS Safety Report 15256854 (Version 1)
Quarter: 2018Q3

REPORT INFORMATION
  Report Type: Spontaneous
  Country: US (occurrence: US)
  Receive Date: 20180808
  Receipt Date: 20180808
  Transmission Date: 20181010
  Serious: No
  Sender: FDA-Public Use
  Company Number: US-ASTRAZENECA-2018SE88892

PATIENT
  Sex: Male

DRUGS (1)
  1. FASENRA [Suspect]
     Active Substance: BENRALIZUMAB
     Indication: EOSINOPHIL COUNT INCREASED
     Dosage: EVERY FOUR WEEKS, FIRST INJECTION AROUND 02?MAY?2018, 2ND INJECTION POSSIBLY 28 OR 31 OF JUNE?20...
     Route: 058

REACTIONS (1)
  - Rash [Unknown]
